FAERS Safety Report 16921364 (Version 1)
Quarter: 2019Q4

REPORT INFORMATION
  Report Type: Spontaneous
  Country: US (occurrence: US)
  Receive Date: 20191015
  Receipt Date: 20191015
  Transmission Date: 20200122
  Serious: No
  Sender: FDA-Public Use
  Company Number: US-SA-2019SA253340

PATIENT
  Age: 63 Year
  Sex: Male

DRUGS (1)
  1. CORTIZONE 10 INTENSIVE HEALING [Suspect]
     Active Substance: HYDROCORTISONE
     Indication: ARTHROPOD BITE

REACTIONS (3)
  - Erythema [Recovered/Resolved]
  - Drug hypersensitivity [Recovered/Resolved]
  - Pruritus [Recovered/Resolved]

NARRATIVE: CASE EVENT DATE: 20190909
